FAERS Safety Report 21871709 (Version 2)
Quarter: 2023Q1

REPORT INFORMATION
  Report Type: Spontaneous
  Country: US (occurrence: US)
  Receive Date: 20230117
  Receipt Date: 20230123
  Transmission Date: 20230417
  Serious: No
  Sender: FDA-Public Use
  Company Number: US-PFIZER INC-PV202300008071

PATIENT
  Age: 22 Year
  Sex: Male
  Weight: 93.44 kg

DRUGS (8)
  1. EUCRISA [Suspect]
     Active Substance: CRISABOROLE
     Indication: Eczema
     Dosage: (APPLY 1 LIBERALLY TO AFFECTED AREA TWICE A DAY X 30 DAYS,DISP. 100 RFL #3
     Route: 061
     Dates: start: 20221223
  2. ALBUTEROL SULFATE [Concomitant]
     Active Substance: ALBUTEROL SULFATE
     Dosage: 90 MCG/ACTUATION HFA AEROSOL INHALER 2 PUFF USING INHALER EVERY FOUR TO SIX HOURS
  3. FLUTICASONE PROPIONATE\SALMETEROL XINAFOATE [Concomitant]
     Active Substance: FLUTICASONE PROPIONATE\SALMETEROL XINAFOATE
     Dosage: 100- 50 MCG/DOSE 1 PUFF AS DIRECTED TWICE A DAY
  4. PIMECROLIMUS [Concomitant]
     Active Substance: PIMECROLIMUS
     Indication: Eczema
     Dosage: APPLY  A SMALL AMOUNT TO AFFECTED AREA TWICE A DAY; DO NOT USE LONGER THAN 1 MONTH . X 30 DAYS
     Dates: start: 20221213
  5. XYZAL [Concomitant]
     Active Substance: LEVOCETIRIZINE DIHYDROCHLORIDE
     Dosage: 5 MG, 1X/DAY (EVERY NIGHT)
     Route: 048
  6. ZYRTEC [Concomitant]
     Active Substance: CETIRIZINE HYDROCHLORIDE
     Dosage: 10 MG, 1X/DAY (EVERY MORNING)
     Route: 048
  7. PREDNISONE ACETATE [Concomitant]
     Active Substance: PREDNISONE ACETATE
     Indication: Eczema
     Dosage: UNK
  8. ADVAIR HFA [Concomitant]
     Active Substance: FLUTICASONE PROPIONATE\SALMETEROL XINAFOATE
     Dosage: 1 PUFF BID FOR OVER 10 YEARS

REACTIONS (3)
  - Drug ineffective [Unknown]
  - Poor quality product administered [Unknown]
  - Product storage error [Unknown]
